FAERS Safety Report 8991355 (Version 1)
Quarter: 2012Q4

REPORT INFORMATION
  Report Type: 
  Country: US (occurrence: US)
  Receive Date: 20121230
  Receipt Date: 20121230
  Transmission Date: 20130627
  Serious: Yes (Other)
  Sender: FDA-Public Use
  Company Number: PHHY2012US119579

PATIENT
  Age: 67 Year
  Sex: Male

DRUGS (1)
  1. ACETYLSALICYLIC ACID [Suspect]
     Route: 048

REACTIONS (4)
  - Cerebral haemorrhage [Unknown]
  - Aneurysm [Unknown]
  - Fall [Unknown]
  - Incorrect drug administration duration [Unknown]
